FAERS Safety Report 21286241 (Version 1)
Quarter: 2022Q3

REPORT INFORMATION
  Report Type: Spontaneous
  Country: US (occurrence: US)
  Receive Date: 20220902
  Receipt Date: 20220902
  Transmission Date: 20221027
  Serious: Yes (Hospitalization)
  Sender: FDA-Public Use
  Company Number: US-HALEON-USCH2022030894

PATIENT
  Sex: Female

DRUGS (1)
  1. GAS-X EXTRA STRENGTH SOFTGELS [Suspect]
     Active Substance: DIMETHICONE
     Indication: Flatulence
     Dates: start: 20210901, end: 20211215

REACTIONS (2)
  - Abdominal distension [Recovered/Resolved]
  - Condition aggravated [Recovered/Resolved]
